FAERS Safety Report 15559632 (Version 3)
Quarter: 2019Q3

REPORT INFORMATION
  Report Type: Spontaneous
  Country: US (occurrence: US)
  Receive Date: 20181029
  Receipt Date: 20190808
  Transmission Date: 20191004
  Serious: Yes (Hospitalization, Other)
  Sender: FDA-Public Use
  Company Number: US-HORIZON-VIM-0435-2018

PATIENT
  Age: 46 Year
  Sex: Female

DRUGS (35)
  1. OXYCODONE [Concomitant]
     Active Substance: OXYCODONE
  2. LISINOPRIL. [Concomitant]
     Active Substance: LISINOPRIL
  3. DEXILANT [Suspect]
     Active Substance: DEXLANSOPRAZOLE
     Route: 065
     Dates: start: 1989, end: 2017
  4. REMERON [Concomitant]
     Active Substance: MIRTAZAPINE
  5. ASPIRIN. [Concomitant]
     Active Substance: ASPIRIN
  6. OXYCODONE [Concomitant]
     Active Substance: OXYCODONE
  7. ATORVASTATIN [Concomitant]
     Active Substance: ATORVASTATIN
  8. TRAZODONE [Concomitant]
     Active Substance: TRAZODONE HYDROCHLORIDE
  9. VIMOVO [Suspect]
     Active Substance: ESOMEPRAZOLE MAGNESIUM\NAPROXEN
     Indication: PRODUCT USED FOR UNKNOWN INDICATION
     Route: 048
     Dates: start: 1989, end: 2017
  10. ACIPHEX [Suspect]
     Active Substance: RABEPRAZOLE SODIUM
     Route: 065
     Dates: start: 1989, end: 2017
  11. LANTUS [Concomitant]
     Active Substance: INSULIN GLARGINE
  12. HYDRALAZINE [Concomitant]
     Active Substance: HYDRALAZINE HYDROCHLORIDE
  13. PREVACID [Suspect]
     Active Substance: LANSOPRAZOLE
     Route: 065
     Dates: start: 1989, end: 2017
  14. PROTONIX [Suspect]
     Active Substance: PANTOPRAZOLE SODIUM
     Indication: GASTROOESOPHAGEAL REFLUX DISEASE
     Route: 065
     Dates: start: 1989, end: 2017
  15. ATIVAN [Concomitant]
     Active Substance: LORAZEPAM
  16. PLAVIX [Concomitant]
     Active Substance: CLOPIDOGREL BISULFATE
  17. GABAPENTIN. [Concomitant]
     Active Substance: GABAPENTIN
  18. FUROSEMIDE. [Concomitant]
     Active Substance: FUROSEMIDE
  19. METOPROLOL. [Concomitant]
     Active Substance: METOPROLOL
  20. PRILOSEC [Suspect]
     Active Substance: OMEPRAZOLE MAGNESIUM
     Route: 048
     Dates: start: 1989, end: 2017
  21. CALCITROL [Concomitant]
  22. NEXIUM [Suspect]
     Active Substance: ESOMEPRAZOLE MAGNESIUM
     Route: 048
     Dates: start: 1989, end: 2017
  23. NEXIUM 24HR [Suspect]
     Active Substance: ESOMEPRAZOLE MAGNESIUM
     Route: 048
     Dates: start: 1989, end: 2017
  24. LIPITOR [Concomitant]
     Active Substance: ATORVASTATIN CALCIUM
  25. ZYRTEC [Concomitant]
     Active Substance: CETIRIZINE HYDROCHLORIDE
  26. PROTONIX [Suspect]
     Active Substance: PANTOPRAZOLE SODIUM
     Indication: GASTROOESOPHAGEAL REFLUX DISEASE
     Dosage: 40.0MG UNKNOWN
     Route: 065
     Dates: start: 20090418, end: 201501
  27. PRILOSEC OTC [Suspect]
     Active Substance: OMEPRAZOLE MAGNESIUM
     Route: 048
     Dates: start: 1989, end: 2017
  28. PROTONIX [Suspect]
     Active Substance: PANTOPRAZOLE SODIUM
     Indication: GASTROOESOPHAGEAL REFLUX DISEASE
     Dosage: 40.0MG UNKNOWN
     Route: 048
  29. LISINOPRIL. [Concomitant]
     Active Substance: LISINOPRIL
  30. FLOMAX [Concomitant]
     Active Substance: TAMSULOSIN HYDROCHLORIDE
  31. METOPROLOL. [Concomitant]
     Active Substance: METOPROLOL
  32. HUMALOG [Concomitant]
     Active Substance: INSULIN LISPRO
  33. CYMBALTA [Concomitant]
     Active Substance: DULOXETINE HYDROCHLORIDE
  34. PROTONIX [Suspect]
     Active Substance: PANTOPRAZOLE SODIUM
     Indication: GASTROOESOPHAGEAL REFLUX DISEASE
     Dosage: 40.0MG UNKNOWN
     Route: 065
     Dates: start: 20141202, end: 201811
  35. METOPROLOL. [Concomitant]
     Active Substance: METOPROLOL

REACTIONS (7)
  - Renal failure [Not Recovered/Not Resolved]
  - Clostridium difficile infection [Unknown]
  - Hyperparathyroidism secondary [Unknown]
  - End stage renal disease [Not Recovered/Not Resolved]
  - Acute kidney injury [Not Recovered/Not Resolved]
  - Nephrogenic anaemia [Unknown]
  - Chronic kidney disease [Not Recovered/Not Resolved]

NARRATIVE: CASE EVENT DATE: 20150128
